FAERS Safety Report 25243888 (Version 1)
Quarter: 2025Q2

REPORT INFORMATION
  Report Type: Spontaneous
  Country: US (occurrence: US)
  Receive Date: 20250428
  Receipt Date: 20250428
  Transmission Date: 20250716
  Serious: No
  Sender: AJANTA PHARMA USA INC
  Company Number: US-AJANTA-2025AJA00051

PATIENT
  Age: 77 Year
  Sex: Female
  Weight: 113 kg

DRUGS (3)
  1. DULOXETINE [Suspect]
     Active Substance: DULOXETINE
     Indication: Depression
     Dates: start: 20240129, end: 20240129
  2. LORAZEPAM [Concomitant]
     Active Substance: LORAZEPAM
  3. VALSARTAN [Concomitant]
     Active Substance: VALSARTAN

REACTIONS (1)
  - Abdominal discomfort [Recovered/Resolved]

NARRATIVE: CASE EVENT DATE: 20240129
